FAERS Safety Report 17367178 (Version 1)
Quarter: 2020Q1

REPORT INFORMATION
  Report Type: Spontaneous
  Country: DE (occurrence: DE)
  Receive Date: 20200204
  Receipt Date: 20200204
  Transmission Date: 20200409
  Serious: Yes (Other)
  Sender: FDA-Public Use
  Company Number: DE-DENTSPLY-2020SCDP000027

PATIENT
  Sex: Male

DRUGS (1)
  1. XYLOCAINE [Suspect]
     Active Substance: LIDOCAINE HYDROCHLORIDE
     Indication: GENITAL HYPOAESTHESIA
     Dosage: UNK
     Route: 061

REACTIONS (4)
  - Expired product administered [Unknown]
  - Erectile dysfunction [Unknown]
  - Penile vascular disorder [Unknown]
  - Product use in unapproved indication [Unknown]
